FAERS Safety Report 6246740-3 (Version None)
Quarter: 2009Q2

REPORT INFORMATION
  Report Type: 
  Country: None (occurrence: None)
  Receive Date: 20090626
  Receipt Date: 20090615
  Transmission Date: 20091009
  Serious: Yes (Hospitalization)
  Sender: FDA-Public Use
  Company Number: JP-PFIZER INC-2009228669

PATIENT
  Age: 62 Year

DRUGS (11)
  1. VFEND [Suspect]
     Indication: PNEUMONIA CRYPTOCOCCAL
     Dosage: UNK
     Route: 048
     Dates: start: 20090526, end: 20090608
  2. PREDNISOLONE [Concomitant]
     Route: 048
  3. CYANOCOBALAMIN [Concomitant]
     Route: 048
  4. BREDININ [Concomitant]
     Route: 048
  5. PRORENAL [Concomitant]
     Route: 048
  6. KREMEZIN [Concomitant]
     Route: 048
  7. ATELEC [Concomitant]
     Route: 048
  8. THYRADIN S [Concomitant]
     Route: 048
  9. VOLTAREN [Concomitant]
  10. CALONAL [Concomitant]
     Route: 048
  11. LENDORMIN [Concomitant]
     Route: 048

REACTIONS (1)
  - HYPERGLYCAEMIA [None]
